FAERS Safety Report 6752690-6 (Version None)
Quarter: 2010Q2

REPORT INFORMATION
  Report Type: 
  Country: None (occurrence: None)
  Receive Date: 20100601
  Receipt Date: 20100601
  Transmission Date: 20101027
  Serious: No
  Sender: FDA-Public Use
  Company Number: None

PATIENT
  Age: 53 Year
  Sex: Female
  Weight: 77.1115 kg

DRUGS (1)
  1. NUVIGIL [Suspect]
     Indication: NARCOLEPSY
     Dosage: 1 IN THE AM PO
     Route: 048
     Dates: start: 20100513, end: 20100601

REACTIONS (4)
  - APHAGIA [None]
  - ORAL PAIN [None]
  - OROPHARYNGEAL BLISTERING [None]
  - WEIGHT DECREASED [None]
